FAERS Safety Report 6124773-5 (Version None)
Quarter: 2009Q1

REPORT INFORMATION
  Report Type: 
  Country: None (occurrence: None)
  Receive Date: 20090319
  Receipt Date: 20090317
  Transmission Date: 20090719
  Serious: Yes (Other)
  Sender: FDA-Public Use
  Company Number: US-ASTRAZENECA-2009UW06849

PATIENT
  Age: 75 Year
  Sex: Female
  Weight: 70.3 kg

DRUGS (5)
  1. CRESTOR [Suspect]
     Route: 048
  2. CRESTOR [Suspect]
     Route: 048
     Dates: start: 20090210
  3. PROZAC [Concomitant]
  4. SYNTHROID [Concomitant]
  5. LOPRESSOR [Concomitant]

REACTIONS (3)
  - ASTHENIA [None]
  - FALL [None]
  - ILL-DEFINED DISORDER [None]
